FAERS Safety Report 6118933-7 (Version None)
Quarter: 2009Q1

REPORT INFORMATION
  Report Type: 
  Country: None (occurrence: None)
  Receive Date: 20090316
  Receipt Date: 20090304
  Transmission Date: 20090719
  Serious: Yes (Hospitalization, Other)
  Sender: FDA-Public Use
  Company Number: GB-RANBAXY-2009RR-22398

PATIENT
  Age: 63 Year
  Sex: Male

DRUGS (4)
  1. ASPIRIN [Suspect]
     Dosage: 75 MG, QD
     Route: 065
  2. APROVEL [Suspect]
     Dosage: 450 MG, QD
     Route: 065
  3. ATORVASTATIN [Suspect]
     Dosage: 40 MG, QD
     Route: 065
  4. FRUSEMIDE [Suspect]
     Dosage: 40 MG, QD
     Route: 065

REACTIONS (1)
  - CORONARY ARTERY BYPASS [None]
